FAERS Safety Report 4890859-6 (Version None)
Quarter: 2006Q1

REPORT INFORMATION
  Report Type: 
  Country: None (occurrence: None)
  Receive Date: 20060125
  Receipt Date: 20060113
  Transmission Date: 20060701
  Serious: Yes (Death)
  Sender: FDA-Public Use
  Company Number: PHBS2006BR00894

PATIENT
  Age: 75 Year
  Sex: Female

DRUGS (5)
  1. FORADIL [Suspect]
     Dosage: 12 UG, ONCE/SINGLE
  2. CAPTOPRIL [Concomitant]
     Dosage: 50 MG, UNK
  3. AMINOPHYLLINE [Concomitant]
     Dosage: 100 MG, UNK
  4. DIGOXIN [Concomitant]
  5. MIFLASONA [Concomitant]
     Dosage: 400 UG, UNK

REACTIONS (1)
  - RESPIRATORY FAILURE [None]
